FAERS Safety Report 10657535 (Version 1)
Quarter: 2014Q4

REPORT INFORMATION
  Report Type: Spontaneous
  Country: US (occurrence: None)
  Receive Date: 20141205
  Receipt Date: 20141205
  Transmission Date: 20150529
  Serious: Yes (Other)
  Sender: FDA-Public Use
  Company Number: 163-POMAL-14082974

PATIENT
  Age: 74 Year
  Sex: Female

DRUGS (16)
  1. GABAPENTIN(GABAPENTIN)(TABLETS) [Concomitant]
  2. TIMOLOL MALEATE (TIMOLOL MALEATE) [Concomitant]
     Active Substance: TIMOLOL
  3. VITAMIN B-12 (CYANOCOBALMIN) [Concomitant]
  4. ACYCLOVIR(ACICLOVIR) [Concomitant]
  5. METFORMIN(METFORMIN(TABLETS) [Concomitant]
  6. IMODIUM(LOPERAMIDE HYDROCHLORIDE)(TABLETS) [Concomitant]
  7. POMALYST [Suspect]
     Active Substance: POMALIDOMIDE
     Indication: PLASMA CELL MYELOMA
     Route: 048
     Dates: start: 201408
  8. ZYRTEC(CETIRIZINE HYDROCHLRODIE)(CAPSULES) [Concomitant]
  9. METAMUCIL(PSYLLIUM HYDROPHILIC MUCILLOID)(POWDER) [Concomitant]
  10. VITAMIN D3( COLECALCIFEROL) [Concomitant]
  11. PROBIOTIC(LACTOBACILLUS RHAMNOSUS, BIFDOBACTERIUM LACTIS, BIFIDOBACTERIUM LONGUM, BIFIDOBACTERIUM BIFIDIUM, LACTOBICILUS ACIDOPHILUS)(TABLETS) [Concomitant]
  12. CRESTOR(ROSUVSTATIN CALCIUM) [Concomitant]
  13. IRON (RION) [Concomitant]
  14. DEXAMETHASONE(DEXAMETHASONE) [Concomitant]
  15. FLONASE(FLUTICASONE PROPIONATE)) [Concomitant]
  16. BENADRYL(DIPHENHYDRAMINE HYDROCHLORIDE)(CAPSULES) [Concomitant]

REACTIONS (1)
  - Hypersensitivity [None]

NARRATIVE: CASE EVENT DATE: 201403
